FAERS Safety Report 12920605 (Version 1)
Quarter: 2016Q4

REPORT INFORMATION
  Report Type: Report from Study
  Country: US (occurrence: US)
  Receive Date: 20161108
  Receipt Date: 20161108
  Transmission Date: 20170207
  Serious: Yes (Other)
  Sender: FDA-Public Use
  Company Number: US-ROCHE-1848187

PATIENT

DRUGS (1)
  1. PEG-INTERFERON ALFA 2A [Suspect]
     Active Substance: PEGINTERFERON ALFA-2A
     Indication: RENAL CELL CARCINOMA
     Route: 058

REACTIONS (23)
  - Fatigue [Unknown]
  - Depression [Unknown]
  - Night sweats [Unknown]
  - Leukopenia [Unknown]
  - Haemoglobinaemia [Unknown]
  - Blood potassium increased [Unknown]
  - Thrombocytopenia [Unknown]
  - Aspartate aminotransferase increased [Unknown]
  - Asthenia [Unknown]
  - Nausea [Unknown]
  - Neutropenia [Unknown]
  - Decreased appetite [Unknown]
  - Weight decreased [Unknown]
  - Blood sodium decreased [Unknown]
  - Vomiting [Unknown]
  - Lethargy [Unknown]
  - Blood glucose increased [Unknown]
  - Alanine aminotransferase increased [Unknown]
  - Rash [Unknown]
  - Blood alkaline phosphatase increased [Unknown]
  - Lymphopenia [Unknown]
  - Chills [Unknown]
  - Blood triglycerides increased [Unknown]
